FAERS Safety Report 9315506 (Version 2)
Quarter: 2013Q3

REPORT INFORMATION
  Report Type: Report from Study
  Country: US (occurrence: US)
  Receive Date: 20130529
  Receipt Date: 20130730
  Transmission Date: 20140515
  Serious: Yes (Other)
  Sender: FDA-Public Use
  Company Number: US-TEVA-407493USA

PATIENT
  Age: 38 Year
  Sex: Female

DRUGS (1)
  1. COPAXONE [Suspect]
     Indication: MULTIPLE SCLEROSIS
     Dates: start: 20120627, end: 20130331

REACTIONS (11)
  - Dyspnoea [Unknown]
  - Muscle spasms [Unknown]
  - Muscle contractions involuntary [Unknown]
  - Flushing [Unknown]
  - Heart rate increased [Unknown]
  - Chest pain [Unknown]
  - Aphasia [Unknown]
  - Fall [Unknown]
  - Loss of consciousness [Unknown]
  - Back pain [Unknown]
  - Adverse drug reaction [Unknown]
